FAERS Safety Report 6031631-3 (Version None)
Quarter: 2008Q4

REPORT INFORMATION
  Report Type: 
  Country: None (occurrence: None)
  Receive Date: 20081229
  Receipt Date: 20080107
  Transmission Date: 20090506
  Serious: Yes (Life-Threatening, Hospitalization, Other)
  Sender: FDA-Public Use
  Company Number: WAES 0706USA02369

PATIENT
  Age: 70 Year
  Sex: Female
  Weight: 60.3284 kg

DRUGS (4)
  1. ZETIA [Suspect]
     Indication: DYSLIPIDAEMIA
     Dosage: 10 MG DAILY PO
     Route: 048
     Dates: start: 20070424, end: 20070601
  2. CENTRUM SILVER [Concomitant]
  3. ASPIRIN [Concomitant]
  4. CALCIUM (UNSPECIFIED) (+) VITAMINS [Concomitant]

REACTIONS (1)
  - THROMBOCYTOPENIA [None]
